FAERS Safety Report 9775199 (Version 2)
Quarter: 2015Q2

REPORT INFORMATION
  Report Type: Spontaneous
  Country: US (occurrence: US)
  Receive Date: 20131220
  Receipt Date: 20150629
  Transmission Date: 20150821
  Serious: Yes (Hospitalization, Other)
  Sender: FDA-Public Use
  Company Number: US-BAYER-2013-154532

PATIENT
  Age: 23 Year
  Sex: Female
  Weight: 58.96 kg

DRUGS (1)
  1. MIRENA [Suspect]
     Active Substance: LEVONORGESTREL
     Indication: CONTRACEPTION
     Dosage: 20 MCG/24HR, CONT
     Route: 015
     Dates: start: 20080728, end: 20111109

REACTIONS (10)
  - Device issue [None]
  - Menstruation irregular [None]
  - Injury [None]
  - Medical device pain [None]
  - Abortion spontaneous [None]
  - Pregnancy with contraceptive device [None]
  - Uterine perforation [None]
  - Medical device discomfort [None]
  - Off label use of device [None]
  - Drug ineffective [None]

NARRATIVE: CASE EVENT DATE: 200902
